FAERS Safety Report 4465519-6 (Version None)
Quarter: 2004Q4

REPORT INFORMATION
  Report Type: 
  Country: None (occurrence: None)
  Receive Date: 20041004
  Receipt Date: 20040114
  Transmission Date: 20050328
  Serious: No
  Sender: FDA-Public Use
  Company Number: US-GLAXOSMITHKLINE-A0493288A

PATIENT
  Age: 38 Year
  Sex: Female

DRUGS (2)
  1. IMITREX [Suspect]
     Indication: MIGRAINE
     Dosage: 20MG FIVE TIMES PER DAY
     Route: 045
     Dates: start: 20040113, end: 20040114
  2. ORAL CONTRACEPTIVE PILLS [Concomitant]

REACTIONS (2)
  - HEADACHE [None]
  - OVERDOSE [None]
